FAERS Safety Report 24721607 (Version 1)
Quarter: 2024Q4

REPORT INFORMATION
  Report Type: Report from Study
  Country: CA (occurrence: CA)
  Receive Date: 20241211
  Receipt Date: 20241211
  Transmission Date: 20250115
  Serious: Yes (Other)
  Sender: PFIZER
  Company Number: CA-PFIZER INC-202400321374

PATIENT
  Age: 29 Year
  Sex: Male

DRUGS (4)
  1. ADALIMUMAB [Suspect]
     Active Substance: ADALIMUMAB
     Indication: Crohn^s disease
     Dosage: 80 MG, 1 EVERY 1 WEEKS
     Route: 058
  2. ADALIMUMAB [Suspect]
     Active Substance: ADALIMUMAB
     Dosage: 80 MG, 1 EVERY 1 WEEKS
     Route: 058
  3. IMURAN [Concomitant]
     Active Substance: AZATHIOPRINE
     Dosage: 125 MG
     Route: 048
  4. PANTOPRAZOLE [Concomitant]
     Active Substance: PANTOPRAZOLE
     Dosage: 50 MG
     Route: 048

REACTIONS (2)
  - Infected fistula [Recovering/Resolving]
  - Off label use [Unknown]
